FAERS Safety Report 11246204 (Version 4)
Quarter: 2016Q2

REPORT INFORMATION
  Report Type: Report from Study
  Country: US (occurrence: US)
  Receive Date: 20150708
  Receipt Date: 20160607
  Transmission Date: 20160815
  Serious: Yes (Other)
  Sender: FDA-Public Use
  Company Number: PHHY2015US056067

PATIENT
  Age: 53 Year
  Sex: Female

DRUGS (1)
  1. GILENYA [Suspect]
     Active Substance: FINGOLIMOD HYDROCHLORIDE
     Indication: MULTIPLE SCLEROSIS
     Dosage: UNK
     Route: 048

REACTIONS (12)
  - Dizziness [Not Recovered/Not Resolved]
  - Non-cardiac chest pain [Recovered/Resolved]
  - Balance disorder [Not Recovered/Not Resolved]
  - Gastric ulcer [Recovered/Resolved]
  - Blood potassium increased [Unknown]
  - Concomitant disease aggravated [Not Recovered/Not Resolved]
  - Fall [Recovered/Resolved]
  - Blood bilirubin decreased [Unknown]
  - Neutropenia [Recovered/Resolved]
  - Blood calcium increased [Unknown]
  - Kidney infection [Recovered/Resolved]
  - Fatigue [Not Recovered/Not Resolved]

NARRATIVE: CASE EVENT DATE: 20141201
